FAERS Safety Report 11172052 (Version 1)
Quarter: 2015Q2

REPORT INFORMATION
  Report Type: Spontaneous
  Country: US (occurrence: US)
  Receive Date: 20150608
  Receipt Date: 20150608
  Transmission Date: 20150821
  Serious: No
  Sender: FDA-Public Use
  Company Number: US-DRREDDYS-USA/USA/15/0045597

PATIENT
  Sex: Female

DRUGS (1)
  1. FEXOFENADINE HCL [Suspect]
     Active Substance: FEXOFENADINE HYDROCHLORIDE
     Indication: SLEEP DISORDER
     Route: 048
     Dates: end: 20150112

REACTIONS (3)
  - Lethargy [Recovering/Resolving]
  - Full blood count abnormal [Unknown]
  - Product use issue [Unknown]
